FAERS Safety Report 12896567 (Version 2)
Quarter: 2016Q4

REPORT INFORMATION
  Report Type: Spontaneous
  Country: US (occurrence: US)
  Receive Date: 20161031
  Receipt Date: 20161104
  Transmission Date: 20170207
  Serious: Yes (Hospitalization)
  Sender: FDA-Public Use
  Company Number: US-CELGENEUS-USA-2016107623

PATIENT
  Sex: Female
  Weight: 108.05 kg

DRUGS (3)
  1. DEXAMETHASONE SODIUM [Concomitant]
     Indication: PRODUCT USED FOR UNKNOWN INDICATION
     Route: 065
  2. REVLIMID [Suspect]
     Active Substance: LENALIDOMIDE
     Indication: PLASMA CELL MYELOMA
     Route: 048
     Dates: start: 20160822, end: 2016
  3. REVLIMID [Suspect]
     Active Substance: LENALIDOMIDE
     Route: 048
     Dates: start: 2016

REACTIONS (2)
  - Full blood count decreased [Unknown]
  - Drug intolerance [Unknown]

NARRATIVE: CASE EVENT DATE: 2016
